FAERS Safety Report 9910031 (Version 1)
Quarter: 2014Q1

REPORT INFORMATION
  Report Type: Spontaneous
  Country: US (occurrence: None)
  Receive Date: 20140212
  Receipt Date: 20140212
  Transmission Date: 20141002
  Serious: Yes (Death)
  Sender: FDA-Public Use
  Company Number: 2014020091

PATIENT
  Age: 53 Year
  Sex: Female

DRUGS (6)
  1. CARISOPRODOL (CARISOPRODOL) [Suspect]
  2. OXYCODONE (OXYCODONE) [Suspect]
  3. TEMAZEPAM (TEMAZEPAM) [Suspect]
  4. ALPRAZOLAM (ALPRAZOLAM) [Suspect]
  5. TRAZODONE (TRAZODONE) [Suspect]
  6. OXYMORPHONE (OXYMORPHONE) [Concomitant]

REACTIONS (1)
  - Completed suicide [None]
